FAERS Safety Report 5070105-3 (Version None)
Quarter: 2006Q3

REPORT INFORMATION
  Report Type: 
  Country: None (occurrence: None)
  Receive Date: 20060714
  Receipt Date: 20060407
  Transmission Date: 20061208
  Serious: No
  Sender: FDA-Public Use
  Company Number: 2006SP001595

PATIENT
  Age: 58 Year
  Sex: Male
  Weight: 98.8842 kg

DRUGS (5)
  1. LUNESTA [Suspect]
     Indication: INSOMNIA
     Dosage: 3 MG;ORAL
     Route: 048
     Dates: start: 20060301
  2. VALIUM [Concomitant]
  3. LITHIUM [Concomitant]
  4. PROZAC [Concomitant]
  5. WELLBUTRIN [Concomitant]

REACTIONS (1)
  - INITIAL INSOMNIA [None]
